FAERS Safety Report 5766851-6 (Version None)
Quarter: 2008Q2

REPORT INFORMATION
  Report Type: 
  Country: None (occurrence: None)
  Receive Date: 20080609
  Receipt Date: 20080425
  Transmission Date: 20081010
  Serious: No
  Sender: FDA-Public Use
  Company Number: 002#1#2008-00329

PATIENT
  Age: 53 Year
  Sex: Male

DRUGS (5)
  1. NEUPRO [Suspect]
     Indication: PARKINSON'S DISEASE
     Dosage: 6MG/24H,1 IN 1 D,TRANSDERMAL ; MG/24H,,TRANSDERMAL
     Route: 062
     Dates: start: 20080101, end: 20080401
  2. NEUPRO [Suspect]
     Indication: PARKINSON'S DISEASE
     Dosage: 6MG/24H,1 IN 1 D,TRANSDERMAL ; MG/24H,,TRANSDERMAL
     Route: 062
     Dates: start: 20080408
  3. SINEMET [Concomitant]
  4. EFFEXOR [Concomitant]
  5. SEROQUEL [Concomitant]

REACTIONS (4)
  - DEPRESSION [None]
  - MOBILITY DECREASED [None]
  - MUSCLE RIGIDITY [None]
  - TREMOR [None]
